FAERS Safety Report 19692282 (Version 2)
Quarter: 2022Q2

REPORT INFORMATION
  Report Type: Report from Study
  Country: PL (occurrence: PL)
  Receive Date: 20210812
  Receipt Date: 20220519
  Transmission Date: 20220720
  Serious: Yes (Hospitalization)
  Sender: FDA-Public Use
  Company Number: PL-EXELIXIS-XL18421041572

PATIENT

DRUGS (14)
  1. CABOZANTINIB [Suspect]
     Active Substance: CABOZANTINIB
     Indication: Non-small cell lung cancer metastatic
     Dosage: 40 MG, QD
     Route: 048
     Dates: start: 20210318
  2. ATEZOLIZUMAB [Suspect]
     Active Substance: ATEZOLIZUMAB
     Indication: Non-small cell lung cancer metastatic
     Dosage: 1200 MG, Q3WEEKS
     Route: 042
     Dates: start: 20210318
  3. ROSUVASTATIN CALCIUM [Concomitant]
     Active Substance: ROSUVASTATIN CALCIUM
     Indication: Hypertension
     Dosage: UNK
     Dates: start: 2006
  4. PERINDOPRIL [Concomitant]
     Active Substance: PERINDOPRIL
     Indication: Hypertension
     Dosage: UNK
     Dates: start: 2006
  5. Olfen [Concomitant]
     Indication: Spinal osteoarthritis
     Dosage: UNK
     Dates: start: 202102
  6. TORECAN [Concomitant]
     Active Substance: THIETHYLPERAZINE MALATE
     Indication: Vomiting
     Dosage: UNK
     Dates: start: 20210408
  7. PROKIT [Concomitant]
     Indication: Vomiting
     Dosage: UNK
     Dates: start: 20210408
  8. Atossa [Concomitant]
     Indication: Vomiting
     Dosage: UNK
     Dates: start: 20210519
  9. MEGACE [Concomitant]
     Active Substance: MEGESTROL ACETATE
     Indication: Decreased appetite
     Dosage: UNK
     Dates: start: 20210519
  10. MEGACE [Concomitant]
     Active Substance: MEGESTROL ACETATE
     Indication: Weight decreased
  11. ESOMEPRAZOLE MAGNESIUM [Concomitant]
     Active Substance: ESOMEPRAZOLE MAGNESIUM
     Indication: Dyspepsia
     Dosage: UNK
     Dates: start: 20210519
  12. POTASSIUM CHLORIDE [Concomitant]
     Active Substance: POTASSIUM CHLORIDE
     Indication: Hypokalaemia
     Dosage: UNK
     Dates: start: 20210427
  13. SLOW MAG B6 [Concomitant]
     Indication: Hypomagnesaemia
     Dosage: UNK
     Dates: start: 20210519
  14. BISOPROLOL FUMARATE [Concomitant]
     Active Substance: BISOPROLOL FUMARATE
     Indication: Hypertension
     Dosage: UNK
     Dates: start: 2006

REACTIONS (1)
  - Hepatic failure [Recovered/Resolved]

NARRATIVE: CASE EVENT DATE: 20210608
